FAERS Safety Report 14984162 (Version 1)
Quarter: 2018Q2

REPORT INFORMATION
  Report Type: Spontaneous
  Country: US (occurrence: US)
  Receive Date: 20180518
  Receipt Date: 20180518
  Transmission Date: 20180711
  Serious: Yes (Disabling, Other)
  Sender: FDA-Public Use
  Company Number: None

PATIENT
  Age: 42 Year
  Sex: Female
  Weight: 58.5 kg

DRUGS (3)
  1. CLORTIMAZOLE [Concomitant]
  2. BETAMETHASONE. [Concomitant]
     Active Substance: BETAMETHASONE
  3. CIPROFLOXACIN 500 MG TAB [Suspect]
     Active Substance: CIPROFLOXACIN
     Indication: BACTERIAL TEST POSITIVE
     Dosage: ?          QUANTITY:14 DF DOSAGE FORM;?
     Route: 048
     Dates: start: 20180423, end: 20180424

REACTIONS (11)
  - Neuropathy peripheral [None]
  - Muscle tightness [None]
  - Gait disturbance [None]
  - Tendon pain [None]
  - Dizziness [None]
  - Exercise tolerance decreased [None]
  - Muscular weakness [None]
  - Blood pressure decreased [None]
  - Hypoaesthesia [None]
  - Tendonitis [None]
  - Pain in extremity [None]

NARRATIVE: CASE EVENT DATE: 20180423
